FAERS Safety Report 16218934 (Version 1)
Quarter: 2019Q2

REPORT INFORMATION
  Report Type: Spontaneous
  Country: IN (occurrence: IN)
  Receive Date: 20190419
  Receipt Date: 20190419
  Transmission Date: 20190711
  Serious: Yes (Other)
  Sender: FDA-Public Use
  Company Number: IN-OTSUKA-2019_013505

PATIENT
  Age: 82 Year
  Sex: Male

DRUGS (1)
  1. DACOGEN [Suspect]
     Active Substance: DECITABINE
     Indication: LEUKAEMIA
     Dosage: UNK
     Route: 042

REACTIONS (2)
  - Restlessness [Unknown]
  - Dyspnoea [Unknown]
